FAERS Safety Report 8532467-1 (Version None)
Quarter: 2012Q3

REPORT INFORMATION
  Report Type: 
  Country: None (occurrence: None)
  Receive Date: 20120716
  Receipt Date: 20120716
  Transmission Date: 20120928
  Serious: No
  Sender: FDA-Public Use
  Company Number: None

PATIENT
  Sex: Female
  Weight: 96.1626 kg

DRUGS (4)
  1. PROZAC [Suspect]
     Indication: DEPRESSION
  2. LORAZPAM [Concomitant]
  3. LAMICTAL [Concomitant]
  4. SEROQUEL [Concomitant]

REACTIONS (5)
  - CLUSTER HEADACHE [None]
  - ANXIETY [None]
  - DEPRESSION [None]
  - MIGRAINE [None]
  - VOMITING [None]
